FAERS Safety Report 7739486-3 (Version None)
Quarter: 2011Q3

REPORT INFORMATION
  Report Type: 
  Country: None (occurrence: None)
  Receive Date: 20110909
  Receipt Date: 20110831
  Transmission Date: 20111222
  Serious: Yes (Death, Life-Threatening, Hospitalization)
  Sender: FDA-Public Use
  Company Number: DE-TEVA-298860GER

PATIENT
  Age: 75 Year
  Sex: Female

DRUGS (4)
  1. ACTRAPID [Concomitant]
     Dosage: 70 IU (INTERNATIONAL UNIT);
     Route: 058
  2. MARCUMAR [Concomitant]
  3. NITROFURANTOIN [Suspect]
     Indication: URINARY TRACT INFECTION
     Route: 048
     Dates: start: 20070101, end: 20110101
  4. LANTUS [Concomitant]
     Dosage: 30 IU (INTERNATIONAL UNIT);
     Route: 058

REACTIONS (3)
  - AUTOIMMUNE HEPATITIS [None]
  - PNEUMONITIS [None]
  - RESPIRATORY FAILURE [None]
